FAERS Safety Report 21356415 (Version 2)
Quarter: 2022Q4

REPORT INFORMATION
  Report Type: Spontaneous
  Country: FR (occurrence: FR)
  Receive Date: 20220920
  Receipt Date: 20221121
  Transmission Date: 20230113
  Serious: Yes (Hospitalization, Other)
  Sender: FDA-Public Use
  Company Number: FR-JNJFOC-20220865726

PATIENT
  Sex: Female

DRUGS (6)
  1. EFFEXOR [Suspect]
     Active Substance: VENLAFAXINE HYDROCHLORIDE
     Indication: Product used for unknown indication
     Dosage: UNK
     Route: 065
  2. SPRAVATO [Suspect]
     Active Substance: ESKETAMINE
     Indication: Product used for unknown indication
     Dosage: UNK
     Route: 065
     Dates: start: 20220531, end: 20220531
  3. SPRAVATO [Suspect]
     Active Substance: ESKETAMINE
     Dosage: 1 TIME EVERY 0.5 WEEKS
     Route: 065
     Dates: start: 202206, end: 202206
  4. SPRAVATO [Suspect]
     Active Substance: ESKETAMINE
     Dosage: 1 TIME EVERY 1 WEEK
     Route: 065
     Dates: start: 202207, end: 202207
  5. SPRAVATO [Suspect]
     Active Substance: ESKETAMINE
     Dosage: UNK
     Route: 065
     Dates: start: 20220802, end: 20220802
  6. TERALITHE [Suspect]
     Active Substance: LITHIUM CARBONATE
     Indication: Product used for unknown indication
     Dosage: UNK
     Route: 065

REACTIONS (4)
  - Injury [Unknown]
  - Intentional self-injury [Unknown]
  - Inappropriate schedule of product administration [Unknown]
  - Intentional product misuse [Unknown]

NARRATIVE: CASE EVENT DATE: 20220808
